FAERS Safety Report 5774884-9 (Version None)
Quarter: 2008Q2

REPORT INFORMATION
  Report Type: 
  Country: None (occurrence: None)
  Receive Date: 20080617
  Receipt Date: 20080606
  Transmission Date: 20081010
  Serious: Yes (Hospitalization)
  Sender: FDA-Public Use
  Company Number: IT-ELI_LILLY_AND_COMPANY-IT200806001440

PATIENT
  Sex: Female

DRUGS (3)
  1. FORTEO [Suspect]
     Indication: OSTEOPOROTIC FRACTURE
     Dosage: 20 UG, DAILY (1/D)
     Route: 058
     Dates: start: 20070118, end: 20080501
  2. ROCALTROL [Concomitant]
     Dosage: 0.5 UG, UNKNOWN
     Route: 048
     Dates: start: 20080401
  3. CALCIUM [Concomitant]
     Dosage: 1 G, UNKNOWN
     Route: 048
     Dates: start: 20080401

REACTIONS (1)
  - BREAST NEOPLASM [None]
